FAERS Safety Report 6491289-6 (Version None)
Quarter: 2009Q4

REPORT INFORMATION
  Report Type: 
  Country: None (occurrence: None)
  Receive Date: 20091211
  Receipt Date: 20091209
  Transmission Date: 20100525
  Serious: Yes (Death, Other)
  Sender: FDA-Public Use
  Company Number: PHHY2009BR54654

PATIENT

DRUGS (1)
  1. DIOVAN HCT [Suspect]
     Dosage: HALF TABLET (320/25 MG)
     Route: 048

REACTIONS (2)
  - DIABETES MELLITUS [None]
  - WRONG TECHNIQUE IN DRUG USAGE PROCESS [None]
